FAERS Safety Report 20225009 (Version 2)
Quarter: 2024Q1

REPORT INFORMATION
  Report Type: Report from Study
  Country: None (occurrence: DE)
  Receive Date: 20211223
  Receipt Date: 20240206
  Transmission Date: 20240410
  Serious: Yes (Other)
  Sender: FDA-Public Use
  Company Number: DE-CLINUVEL INC-2123356

PATIENT
  Sex: Female
  Weight: 57 kg

DRUGS (2)
  1. SCENESSE [Suspect]
     Active Substance: AFAMELANOTIDE
     Indication: Porphyria acute
     Route: 058
     Dates: start: 20200226, end: 20200226
  2. PRILOCAINE HYDROCHLORIDE [Concomitant]
     Active Substance: PRILOCAINE HYDROCHLORIDE
     Dates: start: 20200226

REACTIONS (1)
  - Type I hypersensitivity [Recovered/Resolved]

NARRATIVE: CASE EVENT DATE: 20200226
